FAERS Safety Report 4684510-8 (Version None)
Quarter: 2005Q2

REPORT INFORMATION
  Report Type: 
  Country: None (occurrence: None)
  Receive Date: 20050531
  Receipt Date: 20041011
  Transmission Date: 20051028
  Serious: Yes (Hospitalization, Other)
  Sender: FDA-Public Use
  Company Number: US_0409105193

PATIENT
  Age: 50 Year
  Sex: Male
  Weight: 91 kg

DRUGS (7)
  1. HUMULIN 70/30 [Suspect]
     Dosage: 50 U DAY
  2. ZYPREXA [Suspect]
     Indication: BIPOLAR I DISORDER
     Dates: start: 19990101
  3. DEPAKOTE [Concomitant]
  4. LITHIUM [Concomitant]
  5. METFORMIN [Concomitant]
  6. LISINOPRIL [Concomitant]
  7. LESCOL [Concomitant]

REACTIONS (7)
  - BLOOD GLUCOSE ABNORMAL [None]
  - BLOOD GLUCOSE INCREASED [None]
  - DIABETES MELLITUS [None]
  - HYPERTENSION [None]
  - RETINITIS [None]
  - VISUAL DISTURBANCE [None]
  - WEIGHT INCREASED [None]
